FAERS Safety Report 23346727 (Version 2)
Quarter: 2023Q4

REPORT INFORMATION
  Report Type: Other
  Country: CA (occurrence: CA)
  Receive Date: 20231228
  Receipt Date: 20231229
  Transmission Date: 20240110
  Serious: Yes (Other)
  Sender: FDA-Public Use
  Company Number: CA-PFIZER INC-202300453479

PATIENT
  Age: 51 Year
  Sex: Female

DRUGS (13)
  1. METHOTREXATE SODIUM [Suspect]
     Active Substance: METHOTREXATE SODIUM
     Indication: Prophylaxis against graft versus host disease
     Route: 065
  2. THYMOCYTE IMMUNE GLOBULIN NOS [Suspect]
     Active Substance: THYMOCYTE IMMUNE GLOBULIN NOS
     Indication: Prophylaxis against graft versus host disease
     Route: 065
  3. BUSULFAN [Suspect]
     Active Substance: BUSULFAN
     Indication: Chronic myeloid leukaemia
     Route: 065
  4. BUSULFAN [Suspect]
     Active Substance: BUSULFAN
     Indication: Bone marrow conditioning regimen
  5. BUSULFAN [Suspect]
     Active Substance: BUSULFAN
     Indication: Allogenic stem cell transplantation
  6. BUSULFAN [Suspect]
     Active Substance: BUSULFAN
     Indication: Chronic myeloid leukaemia
     Dosage: UNK
  7. BUSULFAN [Suspect]
     Active Substance: BUSULFAN
     Indication: Bone marrow conditioning regimen
     Dosage: UNK
  8. BUSULFAN [Suspect]
     Active Substance: BUSULFAN
     Indication: Allogenic stem cell transplantation
  9. CYCLOSPORINE [Suspect]
     Active Substance: CYCLOSPORINE
     Indication: Prophylaxis against graft versus host disease
     Route: 065
  10. CYCLOPHOSPHAMIDE [Suspect]
     Active Substance: CYCLOPHOSPHAMIDE
     Indication: Chronic myeloid leukaemia
     Route: 065
  11. CYCLOPHOSPHAMIDE [Suspect]
     Active Substance: CYCLOPHOSPHAMIDE
     Indication: Bone marrow conditioning regimen
  12. CYCLOPHOSPHAMIDE [Suspect]
     Active Substance: CYCLOPHOSPHAMIDE
     Indication: Allogenic stem cell transplantation
  13. TACROLIMUS [Suspect]
     Active Substance: TACROLIMUS
     Indication: Graft versus host disease
     Route: 065

REACTIONS (6)
  - Human herpesvirus 6 infection [Unknown]
  - Polyomavirus viraemia [Unknown]
  - Renal tubular injury [Unknown]
  - Tubulointerstitial nephritis [Unknown]
  - Venoocclusive liver disease [Unknown]
  - Viral haemorrhagic cystitis [Unknown]
